FAERS Safety Report 17923261 (Version 4)
Quarter: 2025Q1

REPORT INFORMATION
  Report Type: Report from Study
  Country: CA (occurrence: CA)
  Receive Date: 20200622
  Receipt Date: 20250109
  Transmission Date: 20250408
  Serious: Yes (Hospitalization, Other)
  Sender: ACCORD
  Company Number: None

PATIENT
  Age: 57 Year
  Sex: Female

DRUGS (17)
  1. GEMCITABINE HYDROCHLORIDE [Suspect]
     Active Substance: GEMCITABINE HYDROCHLORIDE
     Indication: Chemotherapy
     Route: 065
  2. CAPECITABINE [Suspect]
     Active Substance: CAPECITABINE
     Indication: Breast cancer
     Route: 065
  3. FULVESTRANT [Suspect]
     Active Substance: FULVESTRANT
     Indication: Chemotherapy
     Route: 030
  4. ERIBULIN [Suspect]
     Active Substance: ERIBULIN
     Indication: Chemotherapy
     Route: 042
  5. FEMARA [Suspect]
     Active Substance: LETROZOLE
     Indication: Breast cancer
     Route: 048
  6. PALBOCICLIB [Suspect]
     Active Substance: PALBOCICLIB
     Indication: Chemotherapy
     Route: 048
  7. TAMOXIFEN [Suspect]
     Active Substance: TAMOXIFEN
     Indication: Chemotherapy
     Route: 048
  8. TAXOL [Suspect]
     Active Substance: PACLITAXEL
     Indication: Chemotherapy
     Route: 042
  9. TAXOTERE [Suspect]
     Active Substance: DOCETAXEL
     Indication: Chemotherapy
     Route: 042
  10. VINORELBINE [Suspect]
     Active Substance: VINORELBINE TARTRATE
     Indication: Chemotherapy
     Route: 065
  11. FEMARA [Suspect]
     Active Substance: LETROZOLE
     Indication: Breast cancer
     Route: 048
  12. PALBOCICLIB [Suspect]
     Active Substance: PALBOCICLIB
     Indication: Chemotherapy
     Route: 048
  13. TAMOXIFEN [Suspect]
     Active Substance: TAMOXIFEN
     Indication: Chemotherapy
     Route: 048
  14. TAXOL [Suspect]
     Active Substance: PACLITAXEL
     Indication: Chemotherapy
     Route: 042
  15. FEMARA [Suspect]
     Active Substance: LETROZOLE
     Indication: Breast cancer female
     Route: 048
  16. PALBOCICLIB [Suspect]
     Active Substance: PALBOCICLIB
     Indication: Chemotherapy
     Route: 048
  17. TAMOXIFEN [Suspect]
     Active Substance: TAMOXIFEN
     Indication: Chemotherapy
     Route: 048

REACTIONS (5)
  - Drug intolerance [Unknown]
  - Malignant neoplasm progression [Unknown]
  - Neuropathy peripheral [Unknown]
  - Breast cancer [Unknown]
  - Neoplasm progression [Unknown]
